FAERS Safety Report 8566080-7 (Version None)
Quarter: 2012Q3

REPORT INFORMATION
  Report Type: 
  Country: None (occurrence: None)
  Receive Date: 20120803
  Receipt Date: 20110824
  Transmission Date: 20120928
  Serious: No
  Sender: FDA-Public Use
  Company Number: US-ABBOTT-11P-163-0849128-00

PATIENT
  Age: 67 Year
  Weight: 94.432 kg

DRUGS (3)
  1. ASPIRIN [Concomitant]
     Indication: FLUSHING
  2. NIASPAN [Suspect]
     Indication: BLOOD CHOLESTEROL INCREASED
     Dosage: AT BEDTIME
     Dates: start: 20110601, end: 20110823
  3. ASPIRIN [Concomitant]
     Indication: PROPHYLAXIS
     Dosage: TAKEN HALF HOUR BEFORE NIASPAN COATED
     Dates: start: 20110601

REACTIONS (7)
  - DYSPNOEA [None]
  - VISION BLURRED [None]
  - DRY EYE [None]
  - EYE IRRITATION [None]
  - CHAPPED LIPS [None]
  - PARAESTHESIA [None]
  - DRY MOUTH [None]
